FAERS Safety Report 15508133 (Version 1)
Quarter: 2018Q4

REPORT INFORMATION
  Report Type: Spontaneous
  Country: NL (occurrence: NL)
  Receive Date: 20181016
  Receipt Date: 20181016
  Transmission Date: 20190205
  Serious: Yes (Hospitalization, Disabling, Other)
  Sender: FDA-Public Use
  Company Number: NL-FERRINGPH-2018FE05643

PATIENT

DRUGS (7)
  1. MENOTROPHIN HP [Suspect]
     Active Substance: MENOTROPINS
     Indication: ASSISTED FERTILISATION
     Dosage: CONTINUING: NO, UNIT DOSE: 75 IU
     Route: 065
  2. PROFASI [Suspect]
     Active Substance: GONADOTROPHIN, CHORIONIC
     Indication: ASSISTED FERTILISATION
     Dosage: CONCOMITANT DRUG NOT AVAILABLE ()
     Route: 065
  3. DECAPEPTYL [Suspect]
     Active Substance: TRIPTORELIN
     Indication: ASSISTED FERTILISATION
     Dosage: CONTINUING: NO, UNIT DOSE: 3.75 MG ()
     Route: 065
  4. PROGESTAN [Suspect]
     Active Substance: PROGESTERONE
     Indication: ASSISTED FERTILISATION
     Dosage: CONTINUING: NO, UNIT DOSE: 100 MG
     Route: 065
  5. PREGNYL [Suspect]
     Active Substance: CHORIOGONADOTROPIN ALFA
     Indication: ASSISTED FERTILISATION
     Dosage: CONTINUING: NO, UNIT DOSE: 5000 IU
     Route: 065
  6. METRODIN /00012501/ [Suspect]
     Active Substance: METRONIDAZOLE
     Indication: ASSISTED FERTILISATION
     Dosage: CONCOMITANT DRUG NOT AVAILABLE ()
     Route: 065
  7. HUMEGON [Suspect]
     Active Substance: MENOTROPINS
     Indication: ASSISTED FERTILISATION
     Dosage: CONTINUING: NO, UNIT DOSE: 75 IU
     Route: 065

REACTIONS (8)
  - Osteoarthritis [Unknown]
  - Spinal fracture [Unknown]
  - Pelvic pain [Recovered/Resolved]
  - Abortion spontaneous [Recovered/Resolved]
  - Mobility decreased [Recovered/Resolved]
  - Product administration error [Recovered/Resolved]
  - Product use in unapproved indication [Unknown]
  - Fibromyalgia [Recovered/Resolved]
